FAERS Safety Report 9686980 (Version 1)
Quarter: 2013Q4

REPORT INFORMATION
  Report Type: Spontaneous
  Country: IR (occurrence: IR)
  Receive Date: 20131113
  Receipt Date: 20131113
  Transmission Date: 20140711
  Serious: Yes (Other)
  Sender: FDA-Public Use
  Company Number: PHHY2013IR128032

PATIENT
  Age: 63 Year
  Sex: Male

DRUGS (1)
  1. DONEPEZIL [Suspect]
     Dosage: 10 MG, PER DAY

REACTIONS (5)
  - Delirium [Recovered/Resolved]
  - Confusional state [Recovering/Resolving]
  - Irritability [Recovering/Resolving]
  - Agitation [Recovering/Resolving]
  - Aggression [Recovering/Resolving]
